FAERS Safety Report 5322434-3 (Version None)
Quarter: 2007Q2

REPORT INFORMATION
  Report Type: 
  Country: None (occurrence: None)
  Receive Date: 20070511
  Receipt Date: 20070502
  Transmission Date: 20071010
  Serious: Yes (Other)
  Sender: FDA-Public Use
  Company Number: US-ELI_LILLY_AND_COMPANY-US200705000646

PATIENT
  Sex: Female

DRUGS (1)
  1. FORTEO [Suspect]
     Indication: OSTEOPOROSIS
     Dosage: UNK, UNK
     Dates: start: 20060101

REACTIONS (6)
  - BACK PAIN [None]
  - FALL [None]
  - MEMORY IMPAIRMENT [None]
  - MENINGIOMA BENIGN [None]
  - MOUTH INJURY [None]
  - SKIN INJURY [None]
